FAERS Safety Report 9208647 (Version 1)
Quarter: 2013Q2

REPORT INFORMATION
  Report Type: Spontaneous
  Country: US (occurrence: US)
  Receive Date: 20130404
  Receipt Date: 20130404
  Transmission Date: 20140414
  Serious: No
  Sender: FDA-Public Use
  Company Number: US-009507513-1304USA000569

PATIENT
  Age: 87 Year
  Sex: Female

DRUGS (5)
  1. ASMANEX TWISTHALER [Suspect]
     Indication: ASTHMA
     Dosage: DOSE: ONE PUFF EVERY TWELVE HOURS
     Route: 055
     Dates: start: 2012
  2. CEPHALEXIN [Suspect]
     Dosage: UNK
     Dates: start: 20130311
  3. SINGULAIR [Concomitant]
  4. SEREVENT [Concomitant]
  5. PREMERON [Concomitant]
     Dosage: UNK

REACTIONS (4)
  - Scab [Recovered/Resolved]
  - Contusion [Recovered/Resolved]
  - Pruritus generalised [Recovered/Resolved]
  - Product quality issue [Unknown]
